FAERS Safety Report 6015006-9 (Version None)
Quarter: 2008Q4

REPORT INFORMATION
  Report Type: 
  Country: None (occurrence: None)
  Receive Date: 20081219
  Receipt Date: 20081213
  Transmission Date: 20090506
  Serious: Yes (Death, Hospitalization)
  Sender: FDA-Public Use
  Company Number: JP-ALLERGAN-0816143US

PATIENT
  Sex: Female

DRUGS (3)
  1. BOTULINUM TOXIN TYPE A [Suspect]
     Indication: TORTICOLLIS
     Dosage: 100 UNITS, SINGLE
     Route: 030
     Dates: start: 20070416, end: 20070416
  2. BOTULINUM TOXIN TYPE A [Suspect]
     Dosage: 100 UNITS, SINGLE
     Route: 030
     Dates: start: 20061225, end: 20061225
  3. CLOBAZAM [Concomitant]
     Indication: EPILEPSY
     Dosage: 5 MG, QD
     Route: 048
     Dates: start: 20030101

REACTIONS (1)
  - ACUTE RESPIRATORY FAILURE [None]
